FAERS Safety Report 25587564 (Version 2)
Quarter: 2025Q3

REPORT INFORMATION
  Report Type: Spontaneous
  Country: US (occurrence: US)
  Receive Date: 20250721
  Receipt Date: 20250724
  Transmission Date: 20251021
  Serious: Yes (Death, Other)
  Sender: ABBVIE
  Company Number: US-ABBVIE-6380439

PATIENT
  Sex: Male

DRUGS (1)
  1. IMBRUVICA [Suspect]
     Active Substance: IBRUTINIB
     Indication: Chronic lymphocytic leukaemia
     Route: 048
     Dates: end: 2022

REACTIONS (6)
  - General physical health deterioration [Fatal]
  - Chronic lymphocytic leukaemia [Unknown]
  - Urinary tract infection [Unknown]
  - Infection [Unknown]
  - White blood cell count increased [Unknown]
  - Septic shock [Unknown]

NARRATIVE: CASE EVENT DATE: 20220101
